FAERS Safety Report 17461887 (Version 1)
Quarter: 2020Q1

REPORT INFORMATION
  Report Type: Spontaneous
  Country: US (occurrence: US)
  Receive Date: 20200214
  Receipt Date: 20200214
  Transmission Date: 20200409
  Serious: No
  Sender: FDA-Public Use
  Company Number: None

PATIENT
  Sex: Male

DRUGS (1)
  1. HUMIRA [Suspect]
     Active Substance: ADALIMUMAB
     Indication: ANAL ABSCESS
     Dosage: ?          OTHER STRENGTH:40MG/0.8ML;OTHER DOSE:40MG/0.8ML;?
     Route: 058
     Dates: start: 20170918

REACTIONS (2)
  - Rash [None]
  - Pruritus [None]
